FAERS Safety Report 4662956-1 (Version None)
Quarter: 2005Q2

REPORT INFORMATION
  Report Type: 
  Country: None (occurrence: None)
  Receive Date: 20050511
  Receipt Date: 20041129
  Transmission Date: 20051028
  Serious: Yes (Hospitalization)
  Sender: FDA-Public Use
  Company Number: ZONI002070

PATIENT
  Age: 44 Year
  Weight: 73 kg

DRUGS (4)
  1. ZONEGRAN [Suspect]
     Indication: NEUROPATHIC PAIN
     Dosage: 25 MG, 1 IN 1 D, ORAL
     Route: 048
     Dates: start: 20041122, end: 20041124
  2. PREVACID [Concomitant]
  3. ACEON [Concomitant]
  4. LEVOXYL [Concomitant]

REACTIONS (1)
  - GLAUCOMA [None]
